FAERS Safety Report 9441718 (Version 1)
Quarter: 2013Q3

REPORT INFORMATION
  Report Type: Spontaneous
  Country: US (occurrence: US)
  Receive Date: 20130806
  Receipt Date: 20130806
  Transmission Date: 20140515
  Serious: No
  Sender: FDA-Public Use
  Company Number: US-BIOGENIDEC-2013BI072214

PATIENT
  Sex: Male

DRUGS (1)
  1. AVONEX [Suspect]
     Indication: MULTIPLE SCLEROSIS
     Route: 030
     Dates: start: 20030125

REACTIONS (4)
  - Anger [Not Recovered/Not Resolved]
  - Memory impairment [Unknown]
  - Mood swings [Not Recovered/Not Resolved]
  - Emotional disorder [Unknown]
